FAERS Safety Report 8830338 (Version 2)
Quarter: 2012Q4

REPORT INFORMATION
  Report Type: 
  Country: US (occurrence: US)
  Receive Date: 20121009
  Receipt Date: 20121031
  Transmission Date: 20130627
  Serious: Yes (Life-Threatening, Hospitalization, Other)
  Sender: FDA-Public Use
  Company Number: US-BAXTER-2012BAX018738

PATIENT
  Age: 63 Year
  Sex: Male
  Weight: 129.8 kg

DRUGS (1)
  1. FEIBA NF [Suspect]
     Indication: HEMOPHILIA
     Route: 042
     Dates: start: 20120926, end: 20120928

REACTIONS (3)
  - Disseminated intravascular coagulation [Recovering/Resolving]
  - Haemorrhage [Recovered/Resolved]
  - Acute myocardial infarction [Recovering/Resolving]
